FAERS Safety Report 5263805-3 (Version None)
Quarter: 2007Q1

REPORT INFORMATION
  Report Type: 
  Country: None (occurrence: None)
  Receive Date: 20070313
  Receipt Date: 20070306
  Transmission Date: 20070707
  Serious: No
  Sender: FDA-Public Use
  Company Number: US-BAXTER-2007BH002695

PATIENT

DRUGS (1)
  1. HEPARIN SODIUM WITH SODIUM CHLORIDE [Suspect]
     Indication: DRUG USE FOR UNKNOWN INDICATION
     Route: 042
     Dates: start: 20070301

REACTIONS (2)
  - ACCIDENTAL OVERDOSE [None]
  - DEVICE FAILURE [None]
